FAERS Safety Report 4951974-1 (Version None)
Quarter: 2006Q1

REPORT INFORMATION
  Report Type: 
  Country: None (occurrence: None)
  Receive Date: 20060323
  Receipt Date: 20060316
  Transmission Date: 20060701
  Serious: Yes (Other)
  Sender: FDA-Public Use
  Company Number: FR-ROCHE-440889

PATIENT
  Age: 35 Year
  Sex: Male

DRUGS (1)
  1. ROCEPHIN [Suspect]
     Indication: SUPERINFECTION LUNG
     Dosage: FORM REPORTED AS INJECTABLE SOLUTION.
     Route: 030

REACTIONS (1)
  - HEPATITIS [None]
